FAERS Safety Report 6343833-7 (Version None)
Quarter: 2009Q3

REPORT INFORMATION
  Report Type: 
  Country: None (occurrence: None)
  Receive Date: 20090908
  Receipt Date: 20090831
  Transmission Date: 20100115
  Serious: Yes (Death, Hospitalization)
  Sender: FDA-Public Use
  Company Number: PHHO2009JP06634

PATIENT
  Sex: Female
  Weight: 42 kg

DRUGS (15)
  1. AMN107 AMN+CAP [Suspect]
     Indication: GASTROINTESTINAL STROMAL TUMOUR
     Dosage: 800MG DAILY
     Route: 048
     Dates: start: 20090414, end: 20090520
  2. GASTER D [Concomitant]
     Indication: GASTRITIS
  3. MEILAX [Concomitant]
     Indication: CANCER PAIN
  4. OXYCONTIN [Concomitant]
     Indication: CANCER PAIN
  5. OXINORM [Concomitant]
     Indication: CANCER PAIN
  6. ADEROXAL [Concomitant]
     Indication: CANCER PAIN
  7. MAGLAX [Concomitant]
     Indication: CONSTIPATION
  8. TOLEDOMIN [Concomitant]
     Indication: CANCER PAIN
  9. CALONAL [Concomitant]
     Indication: CANCER PAIN
  10. GABAPENTIN [Concomitant]
     Indication: CANCER PAIN
  11. UREPEARL [Concomitant]
     Indication: HYPERKERATOSIS PALMARIS AND PLANTARIS
  12. MOHRUS [Concomitant]
     Indication: CANCER PAIN
  13. PURSENNID [Concomitant]
     Indication: CONSTIPATION
  14. HYALEIN [Concomitant]
     Indication: CORNEAL EROSION
  15. TARIVID [Concomitant]
     Indication: CORNEAL EROSION

REACTIONS (15)
  - CARDIAC ARREST [None]
  - DECREASED APPETITE [None]
  - EXOPHTHALMOS [None]
  - HYPOPHAGIA [None]
  - MALIGNANT NEOPLASM PROGRESSION [None]
  - MEDIASTINUM NEOPLASM [None]
  - METASTASES TO EYE [None]
  - METASTASES TO LIVER [None]
  - METASTASES TO PANCREAS [None]
  - OESOPHAGEAL OBSTRUCTION [None]
  - OESOPHAGEAL STENOSIS [None]
  - PULMONARY MASS [None]
  - RESPIRATORY ARREST [None]
  - STENT PLACEMENT [None]
  - TRACHEO-OESOPHAGEAL FISTULA [None]
